FAERS Safety Report 9894493 (Version 3)
Quarter: 2014Q1

REPORT INFORMATION
  Report Type: Spontaneous
  Country: IT (occurrence: IT)
  Receive Date: 20140213
  Receipt Date: 20140307
  Transmission Date: 20141002
  Serious: Yes (Death, Other)
  Sender: FDA-Public Use
  Company Number: IT-OTSUKA-US-2014-10296

PATIENT
  Sex: 0

DRUGS (12)
  1. BUSULFEX [Suspect]
     Indication: BONE MARROW CONDITIONING REGIMEN
     Dosage: 3.2 MG/KG, QD (1/DAY)
     Route: 042
  2. FLUDARABINE [Suspect]
     Indication: BONE MARROW CONDITIONING REGIMEN
     Dosage: 50 MG/M2, QD (1/DAY)
     Route: 042
  3. THIOTEPA [Suspect]
     Indication: BONE MARROW CONDITIONING REGIMEN
     Dosage: 5 MG/KG, QD, (1/DAY)
  4. ANTITHYMOCYTE IMMUNOGLOBULIN [Concomitant]
     Dosage: UNK
  5. CYCLOSPORINE [Concomitant]
     Dosage: UNK
  6. METHOTREXATE [Concomitant]
     Dosage: UNK
  7. MYCOPHENOLATE MOFETIL [Concomitant]
     Dosage: UNK
  8. BASILIXIMAB [Concomitant]
     Dosage: UNK
  9. TRIMETHOPRIM SULFAMETHOXAZOLE [Concomitant]
     Dosage: UNK
  10. FLUCONAZOLE [Concomitant]
     Dosage: UNK
  11. ACYCLOVIR [Concomitant]
     Dosage: UNK
  12. CIPROFLOXACIN HYDROCHLORIDE [Concomitant]
     Dosage: UNK

REACTIONS (5)
  - Complications of bone marrow transplant [Fatal]
  - Cytomegalovirus infection [Unknown]
  - Bacterial sepsis [Unknown]
  - Acute graft versus host disease [Unknown]
  - Off label use [Unknown]
